FAERS Safety Report 6243615-0 (Version None)
Quarter: 2009Q2

REPORT INFORMATION
  Report Type: 
  Country: None (occurrence: None)
  Receive Date: 20090624
  Receipt Date: 20090611
  Transmission Date: 20091009
  Serious: Yes (Hospitalization)
  Sender: FDA-Public Use
  Company Number: US-PFIZER INC-2008078573

PATIENT
  Sex: Female
  Weight: 91.818 kg

DRUGS (5)
  1. CHANTIX [Suspect]
     Indication: SMOKING CESSATION THERAPY
     Route: 048
     Dates: start: 20070601
  2. CLOZAPINE [Suspect]
  3. PROZAC [Concomitant]
  4. PHENYTOIN [Concomitant]
  5. LORAZEPAM [Concomitant]

REACTIONS (1)
  - MENTAL DISORDER [None]
